FAERS Safety Report 7541318-3 (Version None)
Quarter: 2011Q2

REPORT INFORMATION
  Report Type: 
  Country: None (occurrence: None)
  Receive Date: 20110612
  Receipt Date: 20110526
  Transmission Date: 20111010
  Serious: No
  Sender: FDA-Public Use
  Company Number: US-ROXANE LABORATORIES, INC.-2011-RO-00633RO

PATIENT
  Sex: Female

DRUGS (21)
  1. PREDNISONE [Suspect]
     Indication: SWOLLEN TONGUE
  2. BENADRYL [Concomitant]
     Indication: OEDEMA MOUTH
  3. BENADRYL [Concomitant]
     Indication: GLOSSODYNIA
  4. STEROIDS [Concomitant]
     Indication: OEDEMA MOUTH
  5. BENADRYL [Concomitant]
     Indication: PARAESTHESIA ORAL
  6. PREDNISONE [Suspect]
     Indication: OEDEMA MOUTH
  7. STEROIDS [Concomitant]
     Indication: BURNING SENSATION
  8. STEROIDS [Concomitant]
     Indication: ORAL DISCOMFORT
  9. STEROIDS [Concomitant]
     Indication: GLOSSODYNIA
  10. PREDNISONE [Suspect]
     Indication: BURNING SENSATION
  11. BENADRYL [Concomitant]
     Indication: LIP SWELLING
  12. STEROIDS [Concomitant]
     Indication: PARAESTHESIA ORAL
     Route: 061
  13. PREDNISONE [Suspect]
     Indication: PARAESTHESIA ORAL
  14. PREDNISONE [Suspect]
     Indication: ORAL DISCOMFORT
  15. PREDNISONE [Suspect]
     Indication: GLOSSODYNIA
  16. BENADRYL [Concomitant]
     Indication: BURNING SENSATION
  17. BENADRYL [Concomitant]
     Indication: ORAL DISCOMFORT
  18. STEROIDS [Concomitant]
     Indication: SWOLLEN TONGUE
  19. PREDNISONE [Suspect]
     Indication: LIP SWELLING
  20. BENADRYL [Concomitant]
     Indication: SWOLLEN TONGUE
  21. STEROIDS [Concomitant]
     Indication: LIP SWELLING

REACTIONS (1)
  - DRUG INEFFECTIVE [None]
